FAERS Safety Report 8075943-0 (Version None)
Quarter: 2012Q1

REPORT INFORMATION
  Report Type: 
  Country: None (occurrence: None)
  Receive Date: 20120127
  Receipt Date: 20120123
  Transmission Date: 20120608
  Serious: Yes (Other)
  Sender: FDA-Public Use
  Company Number: US-PFIZER INC-2012019350

PATIENT
  Sex: Male
  Weight: 106 kg

DRUGS (3)
  1. DILANTIN [Suspect]
     Indication: CONVULSION
     Dosage: 400 MG, 1X/DAY
     Route: 048
  2. ZONEGRAN [Concomitant]
     Indication: CONVULSION
     Dosage: 300 MG, DAILY
     Route: 048
  3. DILANTIN [Suspect]
     Dosage: 500 MG, 1X/DAY
     Route: 048

REACTIONS (2)
  - DIZZINESS [None]
  - ANTICONVULSANT DRUG LEVEL INCREASED [None]
